FAERS Safety Report 5338634-2 (Version None)
Quarter: 2007Q2

REPORT INFORMATION
  Report Type: 
  Country: None (occurrence: None)
  Receive Date: 20070322
  Receipt Date: 20060424
  Transmission Date: 20071010
  Serious: Yes (Other)
  Sender: FDA-Public Use
  Company Number: 200611222BCC

PATIENT
  Sex: Female
  Weight: 88.4514 kg

DRUGS (2)
  1. ALEVE [Suspect]
     Indication: ARTHRITIS
     Dosage: 440 MG, TOTAL DAILY, ORAL
     Route: 048
     Dates: start: 20050901
  2. ALEVE [Suspect]
     Indication: PAIN
     Dosage: 440 MG, TOTAL DAILY, ORAL
     Route: 048
     Dates: start: 20050901

REACTIONS (6)
  - CHOKING [None]
  - DYSPNOEA [None]
  - GASTROOESOPHAGEAL REFLUX DISEASE [None]
  - HAEMATEMESIS [None]
  - REGURGITATION [None]
  - STOMACH DISCOMFORT [None]
